FAERS Safety Report 8905772 (Version 2)
Quarter: 2013Q1

REPORT INFORMATION
  Report Type: Spontaneous
  Country: US (occurrence: US)
  Receive Date: 20121113
  Receipt Date: 20130315
  Transmission Date: 20140127
  Serious: Yes (Death, Hospitalization, Disabling)
  Sender: FDA-Public Use
  Company Number: US-GLAXOSMITHKLINE-A1000775A

PATIENT
  Age: 64 Year
  Sex: Male
  Weight: 79.1 kg

DRUGS (2)
  1. VOTRIENT [Suspect]
     Indication: SOFT TISSUE CANCER
     Dosage: 800MG PER DAY
  2. PAIN MEDICATIONS [Concomitant]

REACTIONS (2)
  - Pneumothorax [Fatal]
  - Disease progression [Fatal]
